FAERS Safety Report 5891741-8 (Version None)
Quarter: 2008Q3

REPORT INFORMATION
  Report Type: 
  Country: None (occurrence: None)
  Receive Date: 20080922
  Receipt Date: 20080910
  Transmission Date: 20090109
  Serious: No
  Sender: FDA-Public Use
  Company Number: US-PFIZER INC-2008062179

PATIENT
  Sex: Male
  Weight: 123 kg

DRUGS (7)
  1. CHANTIX [Suspect]
     Indication: SMOKING CESSATION THERAPY
     Route: 048
     Dates: start: 20080621, end: 20080721
  2. CHANTIX [Suspect]
     Indication: NICOTINE DEPENDENCE
  3. XANAX [Concomitant]
  4. VICODIN [Concomitant]
  5. CELEBREX [Concomitant]
  6. SIMVASTATIN [Concomitant]
  7. BENAZEPRIL HYDROCHLORIDE [Concomitant]

REACTIONS (1)
  - NO ADVERSE EVENT [None]
